FAERS Safety Report 10044925 (Version 1)
Quarter: 2014Q1

REPORT INFORMATION
  Report Type: Spontaneous
  Country: FR (occurrence: FR)
  Receive Date: 20140328
  Receipt Date: 20140328
  Transmission Date: 20141002
  Serious: Yes (Hospitalization)
  Sender: FDA-Public Use
  Company Number: FR-GLAXOSMITHKLINE-B0978547A

PATIENT
  Age: 9 Year
  Sex: Male
  Weight: 43 kg

DRUGS (3)
  1. VENTOLIN [Suspect]
     Indication: DYSPNOEA
     Route: 055
     Dates: start: 20140223, end: 20140223
  2. SERETIDE [Concomitant]
     Indication: ASTHMA
     Route: 065
  3. XOLAIR [Concomitant]
     Route: 042

REACTIONS (1)
  - Tremor [Recovered/Resolved]
